FAERS Safety Report 16635908 (Version 1)
Quarter: 2019Q3

REPORT INFORMATION
  Report Type: Spontaneous
  Country: US (occurrence: US)
  Receive Date: 20190726
  Receipt Date: 20190726
  Transmission Date: 20191004
  Serious: Yes (Other)
  Sender: FDA-Public Use
  Company Number: US-AMGEN-USASP2019116237

PATIENT
  Age: 74 Year
  Sex: Female

DRUGS (2)
  1. PROLIA [Suspect]
     Active Substance: DENOSUMAB
     Dosage: 60 MILLIGRAM
     Route: 065
     Dates: start: 201903
  2. PROLIA [Suspect]
     Active Substance: DENOSUMAB
     Indication: OSTEOPOROSIS POSTMENOPAUSAL
     Dosage: 60 MILLIGRAM
     Route: 065
     Dates: start: 2014, end: 2014

REACTIONS (8)
  - Urinary tract infection [Unknown]
  - Sleep disorder due to general medical condition, insomnia type [Unknown]
  - Hypotension [Unknown]
  - Cough [Unknown]
  - Retinopathy hypertensive [Unknown]
  - Pollakiuria [Unknown]
  - Eczema [Unknown]
  - Folliculitis [Unknown]

NARRATIVE: CASE EVENT DATE: 2019
